FAERS Safety Report 9967866 (Version 1)
Quarter: 2014Q1

REPORT INFORMATION
  Report Type: Report from Study
  Country: US (occurrence: US)
  Receive Date: 20140306
  Receipt Date: 20140306
  Transmission Date: 20141002
  Serious: No
  Sender: FDA-Public Use
  Company Number: US-ABBVIE-13P-163-1147444-00

PATIENT
  Sex: Female
  Weight: 76.27 kg

DRUGS (8)
  1. HUMIRA [Suspect]
     Indication: PSORIATIC ARTHROPATHY
     Dosage: 2
     Route: 058
     Dates: start: 2012, end: 201301
  2. PREDNISONE [Concomitant]
     Indication: ARTHRITIS
  3. GABAPENTIN [Concomitant]
     Indication: PAIN
  4. ARAVA [Concomitant]
     Indication: ARTHRITIS
  5. FUROSEMIDE [Concomitant]
     Indication: FLUID RETENTION
  6. METOPROLOL [Concomitant]
     Indication: HYPERTENSION
  7. GLIPIZIDE [Concomitant]
     Indication: DIABETES MELLITUS
  8. LEVOTHYROXINE [Concomitant]
     Indication: HORMONE REPLACEMENT THERAPY

REACTIONS (3)
  - Arthritis [Not Recovered/Not Resolved]
  - Local swelling [Not Recovered/Not Resolved]
  - Local swelling [Not Recovered/Not Resolved]
